FAERS Safety Report 21561274 (Version 8)
Quarter: 2022Q4

REPORT INFORMATION
  Report Type: Report from Study
  Country: GB (occurrence: GB)
  Receive Date: 20221107
  Receipt Date: 20221227
  Transmission Date: 20230112
  Serious: Yes (Other)
  Sender: FDA-Public Use
  Company Number: GB-ABBVIE-22K-167-4489582-00

PATIENT
  Age: 71 Year
  Sex: Female
  Weight: 57 kg

DRUGS (56)
  1. CARBIDOPA\LEVODOPA [Suspect]
     Active Substance: CARBIDOPA\LEVODOPA
     Indication: Parkinson^s disease
     Dosage: 3.7 CONTINUOUS RATE, MORNING DOSE 9.5, EXTRA DOSE 2.2, PUMP RUNS FROM 7 AM TO 10 PM, 20MGS/5MGS
     Route: 050
  2. CARBIDOPA\LEVODOPA [Suspect]
     Active Substance: CARBIDOPA\LEVODOPA
     Dosage: MD: 9.5, CR: 3.1, ED: 2.2?DRUG START DATE AND END DATE 2022
     Route: 050
     Dates: start: 2022, end: 2022
  3. CARBIDOPA\LEVODOPA [Suspect]
     Active Substance: CARBIDOPA\LEVODOPA
     Dosage: MD 9.5 ML, CR 3.7 ML, ED 2.2 ML PUMP RUNNING 7 AM TO 10 PM?DRUG START DATE AND END DATE 2022
     Route: 050
  4. CARBIDOPA\LEVODOPA [Suspect]
     Active Substance: CARBIDOPA\LEVODOPA
     Dosage: MD: 9.5MLS, CR: 3.3MLS, ED: 2.2MLS, 20MGS/5MGS?DRUG START DATE AND END DATE 2022
     Route: 050
     Dates: end: 2022
  5. CARBIDOPA\LEVODOPA [Suspect]
     Active Substance: CARBIDOPA\LEVODOPA
     Dosage: DRUG START DATE  2022
     Route: 050
     Dates: start: 2022
  6. CARBIDOPA\LEVODOPA [Suspect]
     Active Substance: CARBIDOPA\LEVODOPA
     Dosage: DRUG START DATE AND END DATE 2022
     Route: 050
  7. SINEMET [Concomitant]
     Active Substance: CARBIDOPA\LEVODOPA
     Indication: Product used for unknown indication
     Dosage: 12.5/50MGS
  8. SINEMET [Concomitant]
     Active Substance: CARBIDOPA\LEVODOPA
     Indication: Product used for unknown indication
     Dosage: 12.5/50MGS; ;
  9. SINEMET [Concomitant]
     Active Substance: CARBIDOPA\LEVODOPA
     Indication: Product used for unknown indication
     Dosage: 25/100, 1 TABLET; 5 TIMES, 7 AM, 10 AM, 1 PM, 4 PM, 7 PM; ;
  10. SINEMET [Concomitant]
     Active Substance: CARBIDOPA\LEVODOPA
     Indication: Product used for unknown indication
     Dosage: 25/100, 1 TABLET; 5 TIMES, 7 AM, 10 AM, 1 PM, 4 PM, 7 PM; ;
  11. SINEMET [Concomitant]
     Active Substance: CARBIDOPA\LEVODOPA
     Indication: Product used for unknown indication
     Dosage: 12.5/50MGS; ;; ;; ;
  12. SINEMET [Concomitant]
     Active Substance: CARBIDOPA\LEVODOPA
     Indication: Product used for unknown indication
     Dosage: 25/100, 1 TABLET; 5 TIMES, 7 AM, 10 AM, 1 PM, 4 PM, 7 PM; ;; ;
  13. SINEMET [Concomitant]
     Active Substance: CARBIDOPA\LEVODOPA
     Indication: Product used for unknown indication
  14. SINEMET [Concomitant]
     Active Substance: CARBIDOPA\LEVODOPA
     Indication: Product used for unknown indication
     Dosage: 12.5/50MGS
  15. SINEMET [Concomitant]
     Active Substance: CARBIDOPA\LEVODOPA
     Indication: Product used for unknown indication
     Dosage: ONE TABLET PRN OVERNIGHT
  16. SINEMET [Concomitant]
     Active Substance: CARBIDOPA\LEVODOPA
     Indication: Product used for unknown indication
     Dosage: 25/100, 1 TABLET; 5 TIMES, 7 AM, 10 AM, 1 PM, 4 PM, 7 PM; ;
  17. SINEMET [Concomitant]
     Active Substance: CARBIDOPA\LEVODOPA
     Indication: Product used for unknown indication
     Dosage: 25/100 MG, 1 TABLET?5 TIMES DAILY(7 AM,10 AM,1 PM,4 PM,7PM); ;
  18. SINEMET [Concomitant]
     Active Substance: CARBIDOPA\LEVODOPA
     Indication: Product used for unknown indication
     Dosage: 12.5/50MGS; ;; ;
  19. SINEMET [Concomitant]
     Active Substance: CARBIDOPA\LEVODOPA
     Indication: Product used for unknown indication
     Dosage: 25/100, 1 TABLET; 5 TIMES, 7 AM, 10 AM, 1 PM, 4 PM, 7 PM; ;
  20. SINEMET [Concomitant]
     Active Substance: CARBIDOPA\LEVODOPA
     Indication: Product used for unknown indication
     Dosage: 12.5/50MGS; ;
  21. SINEMET [Concomitant]
     Active Substance: CARBIDOPA\LEVODOPA
     Indication: Product used for unknown indication
     Dosage: 25/100, 1 TABLET; 5 TIMES, 7 AM, 10 AM, 1 PM, 4 PM, 7 PM; ;; ;
  22. CITALOPRAM [Concomitant]
     Active Substance: CITALOPRAM HYDROBROMIDE
     Indication: Product used for unknown indication
  23. CLONAZEPAM [Concomitant]
     Active Substance: CLONAZEPAM
     Indication: Product used for unknown indication
     Dosage: 0.25 MG AT NIGHT
  24. CLONAZEPAM [Concomitant]
     Active Substance: CLONAZEPAM
     Indication: Product used for unknown indication
     Dosage: TAKES HALF A TABLET AT 22:00
  25. MIRABEGRON [Concomitant]
     Active Substance: MIRABEGRON
     Indication: Product used for unknown indication
     Dosage: 1TAB AT 9AM PER DAY
  26. POLYETHYLENE GLYCOL 3350\POTASSIUM CHLORIDE\SODIUM BICARBONATE\SODIUM [Concomitant]
     Active Substance: POLYETHYLENE GLYCOL 3350\POTASSIUM CHLORIDE\SODIUM BICARBONATE\SODIUM CHLORIDE
     Indication: Product used for unknown indication
     Dosage: ONE SACHETS DAILY
  27. POLYETHYLENE GLYCOL 3350\POTASSIUM CHLORIDE\SODIUM BICARBONATE\SODIUM [Concomitant]
     Active Substance: POLYETHYLENE GLYCOL 3350\POTASSIUM CHLORIDE\SODIUM BICARBONATE\SODIUM CHLORIDE
     Indication: Product used for unknown indication
     Dosage: TWO SACHETS DAILY; ;; ;
  28. POLYETHYLENE GLYCOL 3350\POTASSIUM CHLORIDE\SODIUM BICARBONATE\SODIUM [Concomitant]
     Active Substance: POLYETHYLENE GLYCOL 3350\POTASSIUM CHLORIDE\SODIUM BICARBONATE\SODIUM CHLORIDE
     Indication: Product used for unknown indication
     Dosage: ONE SACHETS DAILY
  29. SENNA [Concomitant]
     Active Substance: SENNA LEAF\SENNOSIDES\SENNOSIDES A AND B
     Indication: Product used for unknown indication
  30. SENNA [Concomitant]
     Active Substance: SENNA LEAF\SENNOSIDES\SENNOSIDES A AND B
     Indication: Product used for unknown indication
     Dosage: 1-2 TABLETS NIGHT; ;; ;
  31. VITAMIN D3 [Concomitant]
     Active Substance: CHOLECALCIFEROL
     Indication: Product used for unknown indication
  32. CARBIDOPA\LEVODOPA [Concomitant]
     Active Substance: CARBIDOPA\LEVODOPA
     Indication: Product used for unknown indication
     Dosage: 25/100 ONE TABLET
  33. CARBIDOPA\LEVODOPA [Concomitant]
     Active Substance: CARBIDOPA\LEVODOPA
     Indication: Product used for unknown indication
     Dosage: 12.5/50 ONE TABLET PRN OVERNIGHT; ;
  34. CARBIDOPA\LEVODOPA [Concomitant]
     Active Substance: CARBIDOPA\LEVODOPA
     Indication: Product used for unknown indication
     Dosage: ONE TABLET NOCTE (10 PM); ;
  35. CARBIDOPA\LEVODOPA [Concomitant]
     Active Substance: CARBIDOPA\LEVODOPA
     Indication: Product used for unknown indication
     Dosage: 25/100 ONE TABLET; ;
  36. CARBIDOPA\LEVODOPA [Concomitant]
     Active Substance: CARBIDOPA\LEVODOPA
     Indication: Product used for unknown indication
     Dosage: 5 TIMES DAILY(7 AM,10 AM,1 PM,4 PM,7PM); ;
  37. CARBIDOPA\LEVODOPA [Concomitant]
     Active Substance: CARBIDOPA\LEVODOPA
     Indication: Product used for unknown indication
     Dosage: 25/100 ONE TABLET; ;
  38. CARBIDOPA\LEVODOPA [Concomitant]
     Active Substance: CARBIDOPA\LEVODOPA
     Indication: Product used for unknown indication
     Dosage: ONE TABLET NOCTE (10 PM); ;
  39. CARBIDOPA\LEVODOPA [Concomitant]
     Active Substance: CARBIDOPA\LEVODOPA
     Indication: Product used for unknown indication
     Dosage: 5 TIMES DAILY(7 AM,10 AM,1 PM,4 PM,7PM); ;; ;
  40. CARBIDOPA\LEVODOPA [Concomitant]
     Active Substance: CARBIDOPA\LEVODOPA
     Indication: Product used for unknown indication
     Dosage: 12.5/50 ONE TABLET PRN OVERNIGHT
  41. CARBIDOPA\LEVODOPA [Concomitant]
     Active Substance: CARBIDOPA\LEVODOPA
     Indication: Product used for unknown indication
     Dosage: 12.5/50 ONE TABLET PRN OVERNIGHT; ;; ;
  42. CARBIDOPA\LEVODOPA [Concomitant]
     Active Substance: CARBIDOPA\LEVODOPA
     Indication: Product used for unknown indication
     Dosage: 5 TIMES DAILY(7 AM,10 AM,1 PM,4 PM,7PM)
  43. CARBIDOPA\LEVODOPA [Concomitant]
     Active Substance: CARBIDOPA\LEVODOPA
     Indication: Product used for unknown indication
     Dosage: 25/100 ONE TABLET; ;; ;; ;
  44. CARBIDOPA\LEVODOPA [Concomitant]
     Active Substance: CARBIDOPA\LEVODOPA
     Indication: Product used for unknown indication
     Dosage: ONE TABLET NOCTE (10 PM)
  45. CARBIDOPA\LEVODOPA [Concomitant]
     Active Substance: CARBIDOPA\LEVODOPA
     Indication: Product used for unknown indication
     Dosage: 5 TIMES DAILY(7 AM,10 AM,1 PM,4 PM,7PM); ;
  46. CARBIDOPA\LEVODOPA [Concomitant]
     Active Substance: CARBIDOPA\LEVODOPA
     Indication: Product used for unknown indication
     Dosage: ONE TABLET NOCTE (10 PM); ;
  47. CARBIDOPA\LEVODOPA [Concomitant]
     Active Substance: CARBIDOPA\LEVODOPA
     Indication: Product used for unknown indication
     Dosage: 12.5/50 ONE TABLET PRN OVERNIGHT; ;
  48. CARBIDOPA\LEVODOPA [Concomitant]
     Active Substance: CARBIDOPA\LEVODOPA
     Indication: Product used for unknown indication
     Dosage: 25/100 ONE TABLET; ;; ;
  49. CARBIDOPA\LEVODOPA [Concomitant]
     Active Substance: CARBIDOPA\LEVODOPA
     Indication: Product used for unknown indication
     Dosage: 25/100 ONE TABLET; ;
  50. CARBIDOPA\LEVODOPA [Concomitant]
     Active Substance: CARBIDOPA\LEVODOPA
     Indication: Product used for unknown indication
  51. SINEMET CR [Concomitant]
     Active Substance: CARBIDOPA\LEVODOPA
     Indication: Product used for unknown indication
     Dosage: ONE TABLET NOCTE (10 PM)
  52. SINEMET CR [Concomitant]
     Active Substance: CARBIDOPA\LEVODOPA
     Indication: Product used for unknown indication
     Dosage: HALF SINEMET CR; ;
  53. SINEMET CR [Concomitant]
     Active Substance: CARBIDOPA\LEVODOPA
     Indication: Product used for unknown indication
     Dosage: HALF SINEMET CR
  54. CARBIDOPA\LEVODOPA [Concomitant]
     Active Substance: CARBIDOPA\LEVODOPA
     Indication: Product used for unknown indication
     Dosage: 25/100, 1 TABLET; 5 TIMES, 7 AM, 10 AM, 1 PM, 4 PM, 7 PM
  55. OMEPRAZOLE [Concomitant]
     Active Substance: OMEPRAZOLE
     Indication: Product used for unknown indication
  56. SOLIFENACIN [Suspect]
     Active Substance: SOLIFENACIN
     Indication: Hypertonic bladder
     Route: 065

REACTIONS (46)
  - Chest discomfort [Not Recovered/Not Resolved]
  - Dry mouth [Unknown]
  - Adverse drug reaction [Unknown]
  - Middle insomnia [Recovered/Resolved]
  - Abdominal pain [Not Recovered/Not Resolved]
  - Micturition urgency [Unknown]
  - Malaise [Unknown]
  - Contusion [Not Recovered/Not Resolved]
  - Asthenia [Unknown]
  - Feeling hot [Unknown]
  - Muscle rigidity [Unknown]
  - Pollakiuria [Unknown]
  - Weight decreased [Unknown]
  - Head discomfort [Unknown]
  - Headache [Unknown]
  - Fatigue [Unknown]
  - Musculoskeletal disorder [Unknown]
  - Restless legs syndrome [Unknown]
  - Hypertonic bladder [Unknown]
  - Euphoric mood [Unknown]
  - Fall [Unknown]
  - Muscle spasms [Unknown]
  - Pruritus [Unknown]
  - Mobility decreased [Unknown]
  - Initial insomnia [Recovered/Resolved]
  - Hyperhidrosis [Unknown]
  - Dyspnoea [Unknown]
  - Freezing phenomenon [Unknown]
  - Gait disturbance [Unknown]
  - Anxiety [Unknown]
  - Bradykinesia [Unknown]
  - Nocturia [Unknown]
  - Somnolence [Unknown]
  - On and off phenomenon [Unknown]
  - Pain [Unknown]
  - Muscle twitching [Unknown]
  - Depressed mood [Unknown]
  - Ear pruritus [Unknown]
  - Feeling abnormal [Unknown]
  - Tearfulness [Unknown]
  - Dyskinesia [Not Recovered/Not Resolved]
  - Tinnitus [Unknown]
  - Abdominal discomfort [Unknown]
  - Dystonia [Unknown]
  - Stoma site pain [Unknown]
  - Dysphagia [Unknown]

NARRATIVE: CASE EVENT DATE: 20210101
